FAERS Safety Report 9186163 (Version 3)
Quarter: 2013Q2

REPORT INFORMATION
  Report Type: Spontaneous
  Country: US (occurrence: US)
  Receive Date: 20130325
  Receipt Date: 20130611
  Transmission Date: 20140414
  Serious: Yes (Other)
  Sender: FDA-Public Use
  Company Number: US-GLAXOSMITHKLINE-A1015962A

PATIENT
  Age: 77 Year
  Sex: Female

DRUGS (2)
  1. FLOVENT [Suspect]
     Indication: ASTHMA
     Route: 055
  2. CRESTOR [Concomitant]

REACTIONS (6)
  - Drug ineffective [Recovered/Resolved]
  - Expired drug administered [Recovered/Resolved]
  - Treatment noncompliance [Recovered/Resolved]
  - Cough [Recovered/Resolved]
  - Asthma [Recovered/Resolved]
  - Product quality issue [Unknown]
